FAERS Safety Report 13698018 (Version 1)
Quarter: 2017Q2

REPORT INFORMATION
  Report Type: Report from Study
  Country: IT (occurrence: IT)
  Receive Date: 20170628
  Receipt Date: 20170628
  Transmission Date: 20170830
  Serious: Yes (Hospitalization)
  Sender: FDA-Public Use
  Company Number: IT-TEVA-781324ROM

PATIENT

DRUGS (1)
  1. CITALOPRAM [Suspect]
     Active Substance: CITALOPRAM HYDROBROMIDE
     Dosage: 10 MILLIGRAM DAILY;
     Route: 064

REACTIONS (2)
  - Foetal exposure during pregnancy [Unknown]
  - Neonatal behavioural syndrome [Unknown]
